FAERS Safety Report 17256927 (Version 4)
Quarter: 2020Q1

REPORT INFORMATION
  Report Type: Spontaneous
  Country: US (occurrence: US)
  Receive Date: 20200110
  Receipt Date: 20200221
  Transmission Date: 20200409
  Serious: No
  Sender: FDA-Public Use
  Company Number: US-ASTRAZENECA-2020SE03354

PATIENT
  Age: 70 Year
  Sex: Male
  Weight: 69.8 kg

DRUGS (3)
  1. NEXIUM 24HR [Suspect]
     Active Substance: ESOMEPRAZOLE MAGNESIUM
     Indication: GASTRIC ULCER
     Dosage: 40 MG, DAILY (20MG, 2 CAPSULES VIA FEEDING TUBE DAILY)
     Route: 048
  2. BUPROPIONE [Concomitant]
     Active Substance: BUPROPION HYDROCHLORIDE
     Indication: DEPRESSION
     Dosage: 100 MG, DAILY
     Dates: start: 2018
  3. REMERON [Concomitant]
     Active Substance: MIRTAZAPINE
     Indication: DEPRESSION
     Dosage: 15 MG, 1X/DAY (15MG VIA FEEDING TUBE AT BEDTIME)
     Dates: start: 2018

REACTIONS (5)
  - Product physical issue [Unknown]
  - Body height decreased [Unknown]
  - Weight decreased [Unknown]
  - Poor quality product administered [Unknown]
  - Prescribed overdose [Unknown]
